FAERS Safety Report 17316640 (Version 1)
Quarter: 2020Q1

REPORT INFORMATION
  Report Type: Spontaneous
  Country: GB (occurrence: GB)
  Receive Date: 20200124
  Receipt Date: 20200124
  Transmission Date: 20200409
  Serious: Yes (Hospitalization, Disabling, Other)
  Sender: FDA-Public Use
  Company Number: GB-JNJFOC-20200122103

PATIENT
  Age: 79 Year
  Sex: Female
  Weight: 62 kg

DRUGS (10)
  1. RIVAROXABAN [Suspect]
     Active Substance: RIVAROXABAN
     Indication: PRODUCT USED FOR UNKNOWN INDICATION
     Dosage: 30 MG, QD (TO COMPLETE THE LOADING DOSE   )
     Route: 048
     Dates: start: 20191209
  2. CYCLIZINE [Concomitant]
     Active Substance: CYCLIZINE
     Indication: NAUSEA
     Dates: start: 20191210
  3. FUROSEMIDE. [Concomitant]
     Active Substance: FUROSEMIDE
     Dates: start: 20180809
  4. NITROFURANTOIN. [Concomitant]
     Active Substance: NITROFURANTOIN
     Dosage: 1 DF, QD EACH NIGHT
     Dates: start: 20181017, end: 20191209
  5. CALCIUM CARBONATE. [Concomitant]
     Active Substance: CALCIUM CARBONATE
     Dosage: (NOT WITHIN 2 HOURS OF ST...
     Dates: start: 20180717
  6. FORTIJUICE [Concomitant]
     Dosage: USE AS DIRECTED
     Dates: start: 20191220
  7. APIXABAN [Concomitant]
     Active Substance: APIXABAN
     Dates: start: 20191220
  8. PARACETAMOL [Concomitant]
     Active Substance: ACETAMINOPHEN
     Indication: PAIN
     Dosage: TAKE 1 OR 2. MAXIMUM USE 2 TABLETS...
     Dates: start: 20180717
  9. LANSOPRAZOLE. [Concomitant]
     Active Substance: LANSOPRAZOLE
     Dates: start: 20191209
  10. CARBOMERUM 980 [Concomitant]
     Dosage: ONE DROP 3-4 TIMES/DAY
     Dates: start: 20180717

REACTIONS (3)
  - Vomiting [Recovering/Resolving]
  - Nausea [Unknown]
  - Constipation [Recovering/Resolving]

NARRATIVE: CASE EVENT DATE: 20191220
